FAERS Safety Report 6473776-X (Version None)
Quarter: 2009Q4

REPORT INFORMATION
  Report Type: 
  Country: None (occurrence: None)
  Receive Date: 20091204
  Receipt Date: 20091127
  Transmission Date: 20100525
  Serious: Yes (Hospitalization)
  Sender: FDA-Public Use
  Company Number: DE-PFIZER INC-2009303209

PATIENT
  Age: 51 Year
  Sex: Male
  Weight: 79 kg

DRUGS (15)
  1. AMPICILLIN AND SULBACTAM [Suspect]
     Indication: ERYSIPELAS
     Dosage: 1000MG AMPICILLIN/ 500MG SULBACTAM 3X/DAY
     Route: 042
     Dates: start: 20091016, end: 20091019
  2. AMPICILLIN AND SULBACTAM [Suspect]
     Dosage: 375 MG, 2X/DAY
     Route: 048
     Dates: start: 20091019, end: 20091030
  3. PREDNISOLONE AND PREDNISOLONE STEAGLATE [Interacting]
     Indication: GLOMERULONEPHRITIS
     Dosage: 40 MG, 1X/DAY
     Route: 048
     Dates: start: 20091010
  4. ENDOXAN [Interacting]
     Indication: GLOMERULONEPHRITIS
     Dosage: 150 MG, ALTERNATE DAY
     Route: 048
     Dates: start: 20091008
  5. URBASON [Interacting]
     Indication: GLOMERULONEPHRITIS
     Dosage: 1 G, 1X/DAY
     Route: 042
     Dates: start: 20091007, end: 20091009
  6. ACETOLYT [Concomitant]
     Indication: METABOLIC ACIDOSIS
     Dosage: 15 MG, 1X/DAY
     Route: 048
     Dates: start: 20090401
  7. AMLODIPINE [Concomitant]
     Indication: HYPERTENSION
     Dosage: 5 MG, 1X/DAY
     Route: 048
     Dates: start: 20090101
  8. BISOPROLOL [Concomitant]
     Indication: HYPERTENSION
     Dosage: 5 MG, 1X/DAY
     Route: 048
     Dates: start: 20090101
  9. EZETIMIBE/SIMVASTATIN [Concomitant]
     Indication: HYPERLIPIDAEMIA
     Dosage: 10MG EZETIMIB/20MG SIMVASTATIN, 1X/DAY
     Route: 048
     Dates: start: 20090101
  10. MOXONIDINE [Concomitant]
     Indication: HYPERTENSION
     Dosage: 0.2 MG, 1X/DAY
     Route: 048
     Dates: start: 20090101
  11. NEPHROTRANS [Concomitant]
     Indication: RENAL IMPAIRMENT
     Dosage: 500 MG, 1X/DAY
     Route: 048
  12. PANTOZOL [Concomitant]
     Indication: PROPHYLAXIS AGAINST GASTROINTESTINAL ULCER
     Dosage: 40 MG, 1X/DAY
     Route: 048
     Dates: start: 20070101
  13. RAMIPRIL [Concomitant]
     Indication: HYPERTENSION
     Dosage: 5 MG, 2X/DAY
     Route: 048
     Dates: start: 20090101
  14. ALISKIREN [Concomitant]
     Indication: HYPERTENSION
     Dosage: 300 MG, 1X/DAY
     Route: 048
     Dates: start: 20090101
  15. TORASEMIDE [Concomitant]
     Indication: OEDEMA PERIPHERAL
     Dosage: 20 MG, 1X/DAY
     Route: 048
     Dates: start: 20090101

REACTIONS (3)
  - DRUG INTERACTION [None]
  - ENTEROCOLITIS INFECTIOUS [None]
  - PNEUMONIA [None]
